FAERS Safety Report 8285325-4 (Version None)
Quarter: 2012Q2

REPORT INFORMATION
  Report Type: 
  Country: None (occurrence: None)
  Receive Date: 20120413
  Receipt Date: 20111219
  Transmission Date: 20120825
  Serious: No
  Sender: FDA-Public Use
  Company Number: US-ASTRAZENECA-2011SE77190

PATIENT
  Age: 65 Year
  Sex: Female

DRUGS (4)
  1. NEXIUM [Suspect]
     Route: 048
  2. CRESTOR [Suspect]
     Route: 048
  3. NIASPAN [Suspect]
  4. TOPROL-XL [Suspect]
     Route: 048

REACTIONS (2)
  - OSTEOPOROSIS [None]
  - BLOOD GLUCOSE INCREASED [None]
